FAERS Safety Report 6240428-0 (Version None)
Quarter: 2009Q2

REPORT INFORMATION
  Report Type: 
  Country: None (occurrence: None)
  Receive Date: 20090618
  Receipt Date: 20090618
  Transmission Date: 20091009
  Serious: Yes (Life-Threatening, Hospitalization)
  Sender: FDA-Public Use
  Company Number: None

PATIENT
  Age: 41 Year
  Sex: Female
  Weight: 92.9874 kg

DRUGS (1)
  1. AVELOX [Suspect]
     Dosage: 1 TABLET 1X PER DAY PO
     Route: 048
     Dates: start: 20090611, end: 20090611

REACTIONS (2)
  - ANAPHYLACTIC SHOCK [None]
  - UNRESPONSIVE TO STIMULI [None]
